FAERS Safety Report 17974411 (Version 1)
Quarter: 2020Q3

REPORT INFORMATION
  Report Type: Spontaneous
  Country: US (occurrence: US)
  Receive Date: 20200702
  Receipt Date: 20200702
  Transmission Date: 20201103
  Serious: No
  Sender: FDA-Public Use
  Company Number: US-MISSION PHARMACAL COMPANY-2086984

PATIENT
  Age: 25 Year
  Sex: Male

DRUGS (1)
  1. THIOLA EC [Suspect]
     Active Substance: TIOPRONIN
     Indication: CYSTINURIA
     Route: 048
     Dates: start: 20161012

REACTIONS (2)
  - Hypertension [Recovered/Resolved]
  - Drug ineffective [Recovered/Resolved]
